FAERS Safety Report 5057413-7 (Version None)
Quarter: 2006Q3

REPORT INFORMATION
  Report Type: 
  Country: None (occurrence: None)
  Receive Date: 20060721
  Receipt Date: 20050926
  Transmission Date: 20061208
  Serious: No
  Sender: FDA-Public Use
  Company Number: US-GLAXOSMITHKLINE-A0575914A

PATIENT
  Age: 70 Year
  Sex: Male

DRUGS (7)
  1. AVANDIA [Suspect]
     Dosage: 4MG PER DAY
     Route: 048
     Dates: end: 20050601
  2. METFORMIN [Concomitant]
  3. INSULIN [Concomitant]
  4. COZAAR [Concomitant]
  5. CRESTOR [Concomitant]
  6. ACIPHEX [Concomitant]
  7. ASPIRIN [Concomitant]

REACTIONS (1)
  - HOT FLUSH [None]
